FAERS Safety Report 7609068-2 (Version None)
Quarter: 2011Q3

REPORT INFORMATION
  Report Type: 
  Country: None (occurrence: None)
  Receive Date: 20110714
  Receipt Date: 20110707
  Transmission Date: 20111222
  Serious: Yes (Hospitalization, Disabling)
  Sender: FDA-Public Use
  Company Number: JP-PFIZER INC-2011102775

PATIENT
  Age: 12 Year
  Sex: Female

DRUGS (15)
  1. VFEND [Suspect]
     Dosage: 800 MG, 2X/DAY
     Route: 041
     Dates: start: 20110110, end: 20110126
  2. SANDIMMUNE [Suspect]
     Indication: APLASTIC ANAEMIA
     Dosage: UNK
  3. POLYMYXIN B SULFATE [Concomitant]
     Dosage: 1000000 IU, 2X/DAY
     Route: 048
     Dates: start: 20100309
  4. MICAFUNGIN SODIUM [Concomitant]
     Dosage: 150 MG, 1X/DAY
     Route: 041
     Dates: start: 20101115, end: 20110406
  5. VFEND [Suspect]
     Indication: INFECTION
     Dosage: 200 MG, 2X/DAY
     Route: 041
     Dates: start: 20101015, end: 20101028
  6. VFEND [Suspect]
     Dosage: 200 MG, 2X/DAY
     Route: 041
     Dates: start: 20101108, end: 20101108
  7. VFEND [Suspect]
     Dosage: 280 MG, 2X/DAY
     Route: 041
     Dates: start: 20101110, end: 20101129
  8. VFEND [Suspect]
     Dosage: 400 MG, 2X/DAY
     Route: 041
     Dates: start: 20101201, end: 20101216
  9. VFEND [Suspect]
     Dosage: 600 MG, 2X/DAY
     Route: 041
     Dates: start: 20101217, end: 20110110
  10. SULFAMETHOXAZOLE [Concomitant]
     Dosage: 1 DF, 2X/DAY
     Route: 048
     Dates: start: 20100213
  11. VFEND [Suspect]
     Dosage: 240 MG, 2X/DAY
     Route: 041
     Dates: start: 20101109, end: 20101109
  12. VFEND [Suspect]
     Dosage: 700 MG, 2X/DAY
     Route: 041
     Dates: start: 20110127, end: 20110128
  13. VFEND [Suspect]
     Dosage: 340 MG, 2X/DAY
     Route: 041
     Dates: start: 20101130, end: 20101130
  14. VFEND [Suspect]
     Dosage: 600 MG, 2X/DAY
     Route: 041
     Dates: start: 20110129, end: 20110208
  15. VFEND [Suspect]
     Dosage: 700 MG, 2X/DAY
     Route: 041
     Dates: start: 20110209, end: 20110217

REACTIONS (1)
  - PROTEINURIA [None]
